FAERS Safety Report 9669995 (Version 2)
Quarter: 2013Q4

REPORT INFORMATION
  Report Type: Spontaneous
  Country: US (occurrence: US)
  Receive Date: 20131105
  Receipt Date: 20131127
  Transmission Date: 20140711
  Serious: Yes (Hospitalization)
  Sender: FDA-Public Use
  Company Number: US-ABBVIE-13P-163-1165030-00

PATIENT
  Sex: Male
  Weight: 79.45 kg

DRUGS (8)
  1. ANDROGEL [Suspect]
     Indication: BLOOD TESTOSTERONE DECREASED
     Dosage: 4 PUMPS
     Route: 061
     Dates: start: 2011, end: 2012
  2. ANDROGEL [Suspect]
     Dosage: 2 PUMPS
     Dates: start: 2012, end: 2012
  3. ANDROGEL [Suspect]
     Dates: start: 2012
  4. BACLOFEN [Concomitant]
     Indication: MUSCLE RELAXANT THERAPY
  5. CLONAZEPAM [Concomitant]
     Indication: ANXIETY
  6. OMEPRAZOLE [Concomitant]
     Indication: GASTROOESOPHAGEAL REFLUX DISEASE
  7. VOLTATEN GEL [Concomitant]
     Indication: MUSCULOSKELETAL DISCOMFORT
  8. GABAPENTIN [Concomitant]
     Indication: NEURALGIA

REACTIONS (7)
  - Musculoskeletal stiffness [Recovered/Resolved]
  - Vomiting [Recovered/Resolved]
  - Pyrexia [Recovered/Resolved]
  - Cellulitis [Recovered/Resolved]
  - Blood electrolytes abnormal [Recovered/Resolved]
  - Application site rash [Unknown]
  - Blood testosterone decreased [Recovered/Resolved]
